FAERS Safety Report 6631442-1 (Version None)
Quarter: 2010Q1

REPORT INFORMATION
  Report Type: 
  Country: None (occurrence: None)
  Receive Date: 20100311
  Receipt Date: 20100311
  Transmission Date: 20100710
  Serious: Yes (Hospitalization)
  Sender: FDA-Public Use
  Company Number: None

PATIENT
  Age: 19 Year
  Sex: Male

DRUGS (2)
  1. INVEGA [Suspect]
     Indication: PSYCHOTIC DISORDER
     Dosage: 6 MG QDAY PO
     Route: 048
     Dates: start: 20100216, end: 20100308
  2. HALDOL [Suspect]
     Indication: IMPULSE-CONTROL DISORDER
     Dosage: 5 MG PRN PO
     Route: 048
     Dates: start: 20100304, end: 20100308

REACTIONS (5)
  - AGITATION [None]
  - CONVULSION [None]
  - CONVULSIVE THRESHOLD LOWERED [None]
  - DRUG INTERACTION [None]
  - MANIA [None]
